FAERS Safety Report 7607729-2 (Version None)
Quarter: 2011Q3

REPORT INFORMATION
  Report Type: 
  Country: None (occurrence: None)
  Receive Date: 20110713
  Receipt Date: 20110524
  Transmission Date: 20111222
  Serious: Yes (Hospitalization, Other)
  Sender: FDA-Public Use
  Company Number: PHHY2011TW36476

PATIENT
  Sex: Male
  Weight: 58 kg

DRUGS (1)
  1. EXJADE [Suspect]
     Indication: THALASSAEMIA BETA
     Dosage: 2500 MG, UNK
     Route: 048
     Dates: start: 20090716

REACTIONS (8)
  - OSTEOMYELITIS [None]
  - BONE PAIN [None]
  - TENDERNESS [None]
  - BONE INFARCTION [None]
  - AUTOIMMUNE THROMBOCYTOPENIA [None]
  - PAIN [None]
  - MELAENA [None]
  - BONE LESION [None]
